FAERS Safety Report 19518108 (Version 2)
Quarter: 2021Q3

REPORT INFORMATION
  Report Type: Spontaneous
  Country: US (occurrence: US)
  Receive Date: 20210712
  Receipt Date: 20210901
  Transmission Date: 20211014
  Serious: Yes (Other)
  Sender: FDA-Public Use
  Company Number: US-JNJFOC-20210716344

PATIENT
  Age: 5 Decade
  Sex: Female

DRUGS (4)
  1. LISINOPRIL. [Concomitant]
     Active Substance: LISINOPRIL
     Indication: BLOOD PRESSURE MEASUREMENT
     Route: 065
     Dates: start: 2011
  2. ELMIRON [Suspect]
     Active Substance: PENTOSAN POLYSULFATE SODIUM
     Indication: CYSTITIS INTERSTITIAL
     Route: 048
     Dates: start: 1996, end: 1998
  3. ELMIRON [Suspect]
     Active Substance: PENTOSAN POLYSULFATE SODIUM
     Route: 048
     Dates: start: 199801, end: 202008
  4. ESTRIOL [Concomitant]
     Active Substance: ESTRIOL
     Indication: HORMONE LEVEL ABNORMAL
     Route: 065
     Dates: start: 1984

REACTIONS (2)
  - Blindness [Unknown]
  - Retinopathy [Unknown]

NARRATIVE: CASE EVENT DATE: 2000
